FAERS Safety Report 4926416-2 (Version None)
Quarter: 2006Q1

REPORT INFORMATION
  Report Type: 
  Country: None (occurrence: None)
  Receive Date: 20060228
  Receipt Date: 20051116
  Transmission Date: 20060701
  Serious: No
  Sender: FDA-Public Use
  Company Number: US-GLAXOSMITHKLINE-A0582586A

PATIENT
  Sex: Female

DRUGS (10)
  1. LAMICTAL [Suspect]
     Indication: BIPOLAR DISORDER
     Dosage: 50MG TWICE PER DAY
     Route: 048
     Dates: start: 20050101
  2. SEROQUEL [Concomitant]
  3. PROZAC [Concomitant]
  4. ATENOLOL [Concomitant]
  5. GABITRIL [Concomitant]
     Route: 065
  6. LIPITOR [Concomitant]
  7. SYNTHROID [Concomitant]
  8. PREVACID [Concomitant]
  9. GLUCOPHAGE [Concomitant]
  10. TEGRETOL [Concomitant]

REACTIONS (1)
  - RASH [None]
